FAERS Safety Report 25703598 (Version 2)
Quarter: 2025Q4

REPORT INFORMATION
  Report Type: Other
  Country: US (occurrence: US)
  Receive Date: 20250820
  Receipt Date: 20251121
  Transmission Date: 20260118
  Serious: No
  Sender: VERASTEM
  Company Number: US-VERASTEM-2025-00234

PATIENT

DRUGS (1)
  1. AVMAPKI FAKZYNJA CO-PACK [Suspect]
     Active Substance: AVUTOMETINIB POTASSIUM\DEFACTINIB HYDROCHLORIDE
     Indication: Colon cancer
     Dosage: 0.8 MG 4 CAPS DAYS 1 AND 4 FOR 3 OUT OF 4 WEEKS/200 MG 1 TAB TWICE DAILY FOR 3 OUT OF 4 WEEKS
     Route: 048
     Dates: start: 20250616

REACTIONS (1)
  - Product dose omission issue [Unknown]

NARRATIVE: CASE EVENT DATE: 20250623
